FAERS Safety Report 5442633-X (Version None)
Quarter: 2007Q3

REPORT INFORMATION
  Report Type: 
  Country: None (occurrence: None)
  Receive Date: 20070830
  Receipt Date: 20070816
  Transmission Date: 20080115
  Serious: Yes (Death, Hospitalization)
  Sender: FDA-Public Use
  Company Number: 2007SP002877

PATIENT
  Age: 65 Year
  Sex: Male

DRUGS (4)
  1. BROVANA [Suspect]
     Indication: CHRONIC OBSTRUCTIVE PULMONARY DISEASE
     Dosage: 15 UG/2ML; BID; INHALATION
     Route: 055
     Dates: start: 20070601, end: 20070101
  2. CIPROFLOXACIN [Concomitant]
  3. PREDNISONE TAB [Concomitant]
  4. XOPENEX [Concomitant]

REACTIONS (11)
  - BRONCHIECTASIS [None]
  - CARDIAC ARREST [None]
  - CHRONIC OBSTRUCTIVE PULMONARY DISEASE [None]
  - CLOSTRIDIUM DIFFICILE COLITIS [None]
  - FUNGAL INFECTION [None]
  - HYPERKALAEMIA [None]
  - LUNG INFECTION [None]
  - LUNG INFILTRATION [None]
  - RENAL FAILURE ACUTE [None]
  - RESPIRATORY FAILURE [None]
  - VENTRICULAR FIBRILLATION [None]
